FAERS Safety Report 10159798 (Version 1)
Quarter: 2014Q2

REPORT INFORMATION
  Report Type: Spontaneous
  Country: US (occurrence: US)
  Receive Date: 20140508
  Receipt Date: 20140508
  Transmission Date: 20141212
  Serious: No
  Sender: FDA-Public Use
  Company Number: US-GLAXOSMITHKLINE-A1028998A

PATIENT
  Age: 68 Year
  Sex: Female
  Weight: 82.3 kg

DRUGS (6)
  1. TYKERB [Suspect]
     Indication: BREAST CANCER
     Dosage: 1500MG PER DAY
     Route: 048
     Dates: start: 20130607
  2. FEMARA [Concomitant]
  3. UNKNOWN MEDICATION [Concomitant]
  4. ROSUVASTATIN [Concomitant]
  5. ESOMEPRAZOLE [Concomitant]
  6. METFORMIN [Concomitant]

REACTIONS (3)
  - Rash [Recovering/Resolving]
  - Diarrhoea [Recovering/Resolving]
  - Decreased appetite [Recovering/Resolving]
